FAERS Safety Report 10560990 (Version 1)
Quarter: 2014Q4

REPORT INFORMATION
  Report Type: Spontaneous
  Country: NL (occurrence: NL)
  Receive Date: 20141103
  Receipt Date: 20141103
  Transmission Date: 20150529
  Serious: Yes (Hospitalization, Other)
  Sender: FDA-Public Use
  Company Number: NL-BAYER-2014-158709

PATIENT
  Age: 65 Year
  Sex: Female

DRUGS (1)
  1. STIVARGA [Suspect]
     Active Substance: REGORAFENIB
     Dosage: 160 MG, QOD
     Dates: start: 20131025, end: 20140311

REACTIONS (7)
  - Pain in extremity [None]
  - General physical health deterioration [None]
  - Constipation [None]
  - Tumour marker increased [None]
  - Colon cancer [None]
  - Hypertension [None]
  - Glossitis [None]

NARRATIVE: CASE EVENT DATE: 201403
